FAERS Safety Report 7151017-8 (Version None)
Quarter: 2010Q4

REPORT INFORMATION
  Report Type: 
  Country: None (occurrence: None)
  Receive Date: 20101206
  Receipt Date: 20101206
  Transmission Date: 20110411
  Serious: Yes (Other)
  Sender: FDA-Public Use
  Company Number: None

PATIENT
  Sex: Female
  Weight: 128.2 kg

DRUGS (1)
  1. JANUVIA [Suspect]
     Indication: DIABETES MELLITUS
     Dosage: ONE PILL DAILY PO
     Route: 048
     Dates: start: 20100901, end: 20101001

REACTIONS (4)
  - ARTHRALGIA [None]
  - ARTHRITIS [None]
  - MYALGIA [None]
  - PAIN [None]
